FAERS Safety Report 14410649 (Version 3)
Quarter: 2019Q1

REPORT INFORMATION
  Report Type: Spontaneous
  Country: US (occurrence: US)
  Receive Date: 20180119
  Receipt Date: 20190312
  Transmission Date: 20190417
  Serious: No
  Sender: FDA-Public Use
  Company Number: US-ASTRAZENECA-2018SE06433

PATIENT
  Age: 71 Year
  Sex: Male
  Weight: 140.6 kg

DRUGS (10)
  1. LOW DOSE ASPIRIN [Concomitant]
     Active Substance: ASPIRIN
     Indication: ISCHAEMIC HEART DISEASE PROPHYLAXIS
  2. PROPECIA [Concomitant]
     Active Substance: FINASTERIDE
     Indication: ALOPECIA
  3. IVERMECTIN. [Concomitant]
     Active Substance: IVERMECTIN
     Indication: ROSACEA
  4. CRESTOR [Suspect]
     Active Substance: ROSUVASTATIN CALCIUM
     Indication: BLOOD CHOLESTEROL ABNORMAL
     Route: 048
  5. PROPECIA [Concomitant]
     Active Substance: FINASTERIDE
     Indication: ALOPECIA
  6. SUDAFED [Concomitant]
     Active Substance: PSEUDOEPHEDRINE HYDROCHLORIDE
  7. AMBIEN [Concomitant]
     Active Substance: ZOLPIDEM TARTRATE
     Indication: SLEEP DISORDER
  8. PSEUDOEPHEDRINE. [Concomitant]
     Active Substance: PSEUDOEPHEDRINE HYDROCHLORIDE
     Indication: HYPERSENSITIVITY
  9. CRESTOR [Suspect]
     Active Substance: ROSUVASTATIN CALCIUM
     Indication: BLOOD CHOLESTEROL ABNORMAL
     Route: 048
  10. CRESTOR [Suspect]
     Active Substance: ROSUVASTATIN CALCIUM
     Indication: BLOOD CHOLESTEROL ABNORMAL
     Route: 048

REACTIONS (21)
  - Low density lipoprotein increased [Unknown]
  - Androgenetic alopecia [Unknown]
  - Amnesia [Unknown]
  - Obesity [Unknown]
  - Coronary artery disease [Unknown]
  - Vascular stenosis [Unknown]
  - Blood cholesterol decreased [Unknown]
  - Insulin resistance [Unknown]
  - Wheezing [Unknown]
  - Weight increased [Unknown]
  - Insomnia [Unknown]
  - Drug ineffective [Unknown]
  - Cardiac disorder [Unknown]
  - Confusional state [Unknown]
  - Alopecia [Unknown]
  - Arteriosclerosis [Unknown]
  - Respiration abnormal [Unknown]
  - Blood cholesterol increased [Unknown]
  - Dysarthria [Unknown]
  - Dry throat [Unknown]
  - Speech disorder [Unknown]

NARRATIVE: CASE EVENT DATE: 201712
